FAERS Safety Report 8372609-4 (Version None)
Quarter: 2012Q2

REPORT INFORMATION
  Report Type: 
  Country: None (occurrence: None)
  Receive Date: 20120521
  Receipt Date: 20120510
  Transmission Date: 20120825
  Serious: No
  Sender: FDA-Public Use
  Company Number: US-B.I. PHARMACEUTICALS,INC./RIDGEFIELD-2012-BP-10554BP

PATIENT
  Sex: Female

DRUGS (2)
  1. VENTOLIN [Concomitant]
  2. SPIRIVA [Suspect]
     Dosage: 18 MCG
     Route: 055
     Dates: end: 20120503

REACTIONS (3)
  - DYSPNOEA [None]
  - ANXIETY [None]
  - NICOTINE DEPENDENCE [None]
